FAERS Safety Report 7301189 (Version 3)
Quarter: 2013Q4

REPORT INFORMATION
  Report Type: Spontaneous
  Country: US (occurrence: US)
  Receive Date: 20100302
  Receipt Date: 20131028
  Transmission Date: 20140711
  Serious: Yes (Death, Hospitalization)
  Sender: FDA-Public Use
  Company Number: US-BIOGENIDEC-2010BI006085

PATIENT
  Age: 58 Year
  Sex: Male

DRUGS (1)
  1. TYSABRI [Suspect]
     Indication: MULTIPLE SCLEROSIS
     Route: 042
     Dates: start: 20090916, end: 20100121

REACTIONS (3)
  - Renal cancer [Fatal]
  - Multiple sclerosis [Fatal]
  - Metastatic renal cell carcinoma [Not Recovered/Not Resolved]
